FAERS Safety Report 18810690 (Version 1)
Quarter: 2021Q1

REPORT INFORMATION
  Report Type: Spontaneous
  Country: US (occurrence: US)
  Receive Date: 20210129
  Receipt Date: 20210129
  Transmission Date: 20210419
  Serious: No
  Sender: FDA-Public Use
  Company Number: US-CURIUM-2020000570

PATIENT
  Sex: Female

DRUGS (1)
  1. I?123 CAPS, 200 UCI (SODIUM IODIDE) [Suspect]
     Active Substance: SODIUM IODIDE I-123
     Indication: SCAN THYROID GLAND
     Route: 048
     Dates: start: 20201217, end: 20201217

REACTIONS (2)
  - Intercepted medication error [Recovered/Resolved]
  - Product dispensing error [Recovered/Resolved]

NARRATIVE: CASE EVENT DATE: 20201217
